FAERS Safety Report 8217374-6 (Version None)
Quarter: 2012Q1

REPORT INFORMATION
  Report Type: 
  Country: None (occurrence: None)
  Receive Date: 20120315
  Receipt Date: 20120302
  Transmission Date: 20120608
  Serious: Yes (Hospitalization, Disabling)
  Sender: FDA-Public Use
  Company Number: TPA2011A08392

PATIENT
  Age: 73 Year
  Sex: Male
  Weight: 89.8122 kg

DRUGS (4)
  1. METFORMIN ER (METFORMIN HYDROCHLORIDE) [Concomitant]
  2. GLIPIZIDE ER (GLIPIZIDE) [Concomitant]
  3. ACTOS [Suspect]
     Indication: TYPE 2 DIABETES MELLITUS
     Dosage: 30 MG, 1 IN 1 D, PER ORAL, {31/NOV/2008-12/08/2011
     Route: 048
     Dates: start: 20081101, end: 20111208
  4. TAMSULOSIN HCL [Concomitant]

REACTIONS (1)
  - BLADDER CANCER [None]
